FAERS Safety Report 9517439 (Version 2)
Quarter: 2014Q1

REPORT INFORMATION
  Report Type: Spontaneous
  Country: DE (occurrence: CA)
  Receive Date: 20130911
  Receipt Date: 20140123
  Transmission Date: 20141002
  Serious: Yes (Hospitalization)
  Sender: FDA-Public Use
  Company Number: CA-FRI-1000048692

PATIENT
  Age: 84 Year
  Sex: Male
  Weight: 86 kg

DRUGS (15)
  1. MEMANTINE [Suspect]
     Indication: DEMENTIA ALZHEIMER^S TYPE
     Dosage: 10 MG
     Route: 048
     Dates: start: 201205, end: 2012
  2. NOVO-SPIROZINE [Concomitant]
     Dosage: 25 MG
     Route: 048
  3. NOVO-SPIROZINE [Concomitant]
     Dosage: 12.5 MG
     Route: 048
  4. ASA [Concomitant]
     Dosage: 40.5 MG
     Route: 048
  5. CO DILTIAZEM [Concomitant]
     Dosage: 360 MG
     Route: 048
  6. CO LOSARTAN [Concomitant]
     Dosage: 100 MG
     Route: 048
  7. CO ROSUVASTATIN [Concomitant]
     Dosage: 5 MG
     Route: 048
  8. FERROUS SULPHATE [Concomitant]
     Dosage: 300 MG
     Route: 048
  9. MULTIVITAMIN [Concomitant]
  10. NITROGLYCERIN [Concomitant]
     Route: 062
  11. NITROLINGUAL PUMPSPRAY [Concomitant]
     Route: 060
  12. REMINYL ER [Concomitant]
     Indication: DEMENTIA
  13. STOOL SOFTENER [Concomitant]
  14. VITAMIN D [Concomitant]
  15. OMEGA 3 [Concomitant]

REACTIONS (2)
  - Aggression [Recovering/Resolving]
  - Mood swings [Recovering/Resolving]
